FAERS Safety Report 11879550 (Version 1)
Quarter: 2015Q4

REPORT INFORMATION
  Report Type: Spontaneous
  Country: US (occurrence: US)
  Receive Date: 20151230
  Receipt Date: 20151230
  Transmission Date: 20160305
  Serious: No
  Sender: FDA-Public Use
  Company Number: US-SHIRE-US-000709

PATIENT
  Age: 68 Year
  Sex: Female

DRUGS (23)
  1. GATTEX [Suspect]
     Active Substance: TEDUGLUTIDE\WATER
     Indication: SHORT-BOWEL SYNDROME
     Dosage: 0.25 MG, 1X/DAY:QD
     Route: 058
     Dates: start: 20130501
  2. PANTOPRAZOLE [Concomitant]
     Active Substance: PANTOPRAZOLE SODIUM
     Indication: GASTROOESOPHAGEAL REFLUX DISEASE
     Dosage: STREN/VOLUM: 40 MG |FREQU: TWICE A DAY
     Dates: start: 200902
  3. PROBIOTIC                          /06395501/ [Concomitant]
     Active Substance: BIFIDOBACTERIUM ANIMALIS SUBSP. LACTIS
     Indication: VITAMIN SUPPLEMENTATION
     Dosage: STREN/VOLUM: 1 TABLETS|FREQU: ONCE A DAY
     Dates: start: 200902
  4. VITAMIN B12 [Concomitant]
     Active Substance: CYANOCOBALAMIN
     Indication: VITAMIN SUPPLEMENTATION
     Dosage: STREN/VOLUM: 1 INJECTION|FREQU: MONTHLY
     Dates: start: 200902
  5. VITAMIN C [Concomitant]
     Active Substance: ASCORBIC ACID
     Indication: VITAMIN SUPPLEMENTATION
     Dosage: STREN/VOLUM: 500 MCG (2TABLETS)|FREQU: ONCE A DAY
     Dates: start: 200902
  6. FOLIC ACID. [Concomitant]
     Active Substance: FOLIC ACID
     Indication: VITAMIN SUPPLEMENTATION
     Dosage: STREN/VOLUM: 800 MCG |FREQU: ONCE A DAY
     Dates: start: 200902
  7. B12                                /00056201/ [Concomitant]
     Indication: VITAMIN SUPPLEMENTATION
     Dosage: STREN/VOLUM: 1000 MCG|FREQU: ONCE A DAY
     Dates: start: 200902
  8. APPLE PECTIN [Concomitant]
     Indication: ABNORMAL FAECES
     Dosage: STREN/VOLUM: 500 MG (2 TABLETS)|FREQU: TWICE A DAY
     Dates: start: 200902
  9. CHELATED MAGNESIUM                 /01066801/ [Concomitant]
     Indication: VITAMIN SUPPLEMENTATION
     Dosage: STREN/VOLUM: 250 MG (3TABLETS)|FREQU: FOUR TIMES A DAY
     Dates: start: 200902
  10. ASPIRIN                            /00002701/ [Concomitant]
     Active Substance: ASPIRIN
     Indication: CARDIOVASCULAR EVENT PROPHYLAXIS
     Dosage: STREN/VOLUM: 81 MG|FREQU: ONCE A DAY
     Dates: start: 200902
  11. IRON [Concomitant]
     Active Substance: IRON
     Indication: MINERAL SUPPLEMENTATION
     Dosage: STREN/VOLUM: 65 MG |FREQU: ONCE A DAY
     Dates: start: 200902
  12. VITAMIN D                          /00107901/ [Concomitant]
     Active Substance: ERGOCALCIFEROL
     Indication: VITAMIN SUPPLEMENTATION
     Dosage: STREN/VOLUM: 5000 UNITS|FREQU: ONCE A DAY
     Dates: start: 200902
  13. LIPIDS NOS W/PROTEINS NOS/VITAMINS NOS [Concomitant]
     Indication: SHORT-BOWEL SYNDROME
  14. BENEFIBER                          /00677201/ [Concomitant]
     Active Substance: ICODEXTRIN
     Indication: ABNORMAL FAECES
     Dosage: STREN/VOLUM: 1 TABLESPOON|FREQU: TWICE A DAY
     Dates: start: 200902
  15. BETACAROTENE [Concomitant]
     Active Substance: .BETA.-CAROTENE
     Indication: VITAMIN SUPPLEMENTATION
     Dosage: STREN/VOLUM: 25000 UNITS|FREQU: ONCE A DAY
     Dates: start: 200902
  16. BIOTIN [Concomitant]
     Active Substance: BIOTIN
     Indication: ALOPECIA
     Dosage: STREN/VOLUM: 2500 MG|FREQU: ONCE A DAY
     Dates: start: 200902
  17. LOMOTIL [Concomitant]
     Active Substance: ATROPINE SULFATE\DIPHENOXYLATE HYDROCHLORIDE
     Indication: DIARRHOEA
     Dosage: STREN/VOLUM: 2.5 MG (4 TABLETS)|FREQU: FOUR TIMES A DAY
     Dates: start: 201107
  18. ZINC [Concomitant]
     Active Substance: ZINC\ZINC CHLORIDE
     Indication: VITAMIN SUPPLEMENTATION
     Dosage: STREN/VOLUM: 50 MG|FREQU: ONCE A DAY
     Dates: start: 200902
  19. IMODIUM [Concomitant]
     Active Substance: LOPERAMIDE HYDROCHLORIDE
     Indication: DIARRHOEA
     Dosage: STREN/VOLUM: 2 MG (4 TABLETS)|FREQU: FOUR TIMES A DAY
     Dates: start: 201107
  20. MAGNESIUM [Concomitant]
     Active Substance: MAGNESIUM
     Indication: SHORT-BOWEL SYNDROME
     Dosage: STREN/VOLUM: 12 MEQ|FREQU: THREE TIMES A WEEK
     Dates: start: 200902
  21. SALINE                             /00075401/ [Concomitant]
     Active Substance: SODIUM CHLORIDE
     Indication: DEHYDRATION
     Dosage: STREN/VOLUM: 1/2 BAG OR 1 BAG|FREQU: AS NEEDED
     Dates: start: 200902
  22. CALCIUM WITH VITAMIN D             /00944201/ [Concomitant]
     Active Substance: CALCIUM\VITAMIN D
     Indication: VITAMIN SUPPLEMENTATION
     Dosage: STREN/VOLUM: 500 (2 TABLETS)|FREQU: ONCE A DAY
     Dates: start: 200902
  23. MULTI VITAMIN [Concomitant]
     Active Substance: VITAMINS
     Indication: VITAMIN SUPPLEMENTATION
     Dosage: STREN/VOLUM: 2 TABLETS|FREQU: ONCE A DAY
     Dates: start: 200902

REACTIONS (4)
  - Oedema peripheral [Recovered/Resolved]
  - Intestinal polyp [Unknown]
  - Gastrointestinal stoma complication [Not Recovered/Not Resolved]
  - Nausea [Recovering/Resolving]

NARRATIVE: CASE EVENT DATE: 20130501
